FAERS Safety Report 22606517 (Version 1)
Quarter: 2023Q2

REPORT INFORMATION
  Report Type: Spontaneous
  Country: PR (occurrence: PR)
  Receive Date: 20230615
  Receipt Date: 20230615
  Transmission Date: 20230721
  Serious: No
  Sender: FDA-Public Use
  Company Number: PR-JNJFOC-20230635760

PATIENT
  Age: 81 Year
  Sex: Male

DRUGS (1)
  1. ERLEADA [Suspect]
     Active Substance: APALUTAMIDE
     Indication: Product used for unknown indication
     Route: 048

REACTIONS (2)
  - Nasopharyngitis [Recovering/Resolving]
  - Decreased appetite [Recovering/Resolving]

NARRATIVE: CASE EVENT DATE: 20230613
